FAERS Safety Report 13844942 (Version 12)
Quarter: 2020Q3

REPORT INFORMATION
  Report Type: Report from Study
  Country: DE (occurrence: DE)
  Receive Date: 20170808
  Receipt Date: 20200907
  Transmission Date: 20201102
  Serious: Yes (Hospitalization, Other)
  Sender: FDA-Public Use
  Company Number: PHHY2017DE092066

PATIENT
  Age: 54 Year
  Sex: Male
  Weight: 69 kg

DRUGS (6)
  1. TILIDIN [Concomitant]
     Active Substance: NALOXONE HYDROCHLORIDE\TILIDINE HYDROCHLORIDE
     Indication: INTESTINAL RESECTION
     Dosage: 4 MG, PRN
     Route: 048
     Dates: start: 201705, end: 20170614
  2. TILIDIN [Concomitant]
     Active Substance: NALOXONE HYDROCHLORIDE\TILIDINE HYDROCHLORIDE
     Indication: INCISIONAL HERNIA
  3. AFINITOR [Suspect]
     Active Substance: EVEROLIMUS
     Indication: CHEMOTHERAPY MULTIPLE AGENTS SYSTEMIC
     Dosage: 7.5 MG, QD
     Route: 048
     Dates: start: 20170615, end: 20170726
  4. AFINITOR [Suspect]
     Active Substance: EVEROLIMUS
     Dosage: 5 MG, QD
     Route: 048
     Dates: start: 20170727, end: 20170727
  5. TILIDIN [Concomitant]
     Active Substance: NALOXONE HYDROCHLORIDE\TILIDINE HYDROCHLORIDE
     Indication: COLECTOMY
  6. AFINITOR [Suspect]
     Active Substance: EVEROLIMUS
     Indication: METASTATIC RENAL CELL CARCINOMA
     Dosage: 10 MG, QD
     Route: 048
     Dates: start: 20170530, end: 20170614

REACTIONS (15)
  - Stomatitis [Recovered/Resolved]
  - Cachexia [Not Recovered/Not Resolved]
  - Anaemia [Recovering/Resolving]
  - Dysgeusia [Not Recovered/Not Resolved]
  - Flank pain [Recovered/Resolved]
  - Acute kidney injury [Not Recovered/Not Resolved]
  - Dry mouth [Recovered/Resolved]
  - Diarrhoea [Recovered/Resolved]
  - Platelet count increased [Unknown]
  - Infectious pleural effusion [Recovering/Resolving]
  - Cough [Not Recovered/Not Resolved]
  - Rash [Not Recovered/Not Resolved]
  - Dyspnoea [Not Recovered/Not Resolved]
  - Stomatitis [Unknown]
  - Mucosal inflammation [Recovered/Resolved]

NARRATIVE: CASE EVENT DATE: 20170614
